FAERS Safety Report 20469198 (Version 1)
Quarter: 2022Q1

REPORT INFORMATION
  Report Type: Spontaneous
  Country: US (occurrence: None)
  Receive Date: 20220212
  Receipt Date: 20220212
  Transmission Date: 20220424
  Serious: Yes (Other)
  Sender: FDA-Public Use
  Company Number: None

PATIENT
  Age: 24 Month
  Sex: Male
  Weight: 14.85 kg

DRUGS (4)
  1. CETIRIZINE HYDROCHLORIDE [Suspect]
     Active Substance: CETIRIZINE HYDROCHLORIDE
     Indication: Hypersensitivity
     Dosage: OTHER QUANTITY : 2.5 TEASPOON(S);?FREQUENCY : AT BEDTIME;?
     Route: 048
     Dates: start: 20220127, end: 20220129
  2. ZYRTEC [Suspect]
     Active Substance: CETIRIZINE HYDROCHLORIDE
     Indication: Hypersensitivity
     Dosage: OTHER QUANTITY : 2.5 TEASPOON(S);?FREQUENCY : AT BEDTIME;?
     Route: 048
     Dates: start: 20220129, end: 20220129
  3. ZYRTEC [Concomitant]
     Active Substance: CETIRIZINE HYDROCHLORIDE
  4. CETIRIZINE [Concomitant]
     Active Substance: CETIRIZINE HYDROCHLORIDE

REACTIONS (4)
  - Tremor [None]
  - Pyrexia [None]
  - Seizure [None]
  - Sleep disorder [None]

NARRATIVE: CASE EVENT DATE: 20220129
